FAERS Safety Report 24878467 (Version 8)
Quarter: 2025Q2

REPORT INFORMATION
  Report Type: Spontaneous
  Country: US (occurrence: US)
  Receive Date: 20250123
  Receipt Date: 20250422
  Transmission Date: 20250716
  Serious: No
  Sender: PFIZER
  Company Number: US-PFIZER INC-202500007773

PATIENT
  Age: 11 Year
  Sex: Female

DRUGS (2)
  1. GENOTROPIN [Suspect]
     Active Substance: SOMATROPIN
     Indication: Growth disorder
     Dosage: 1.6 MG, 1X/DAY
     Route: 058
  2. LEXAPRO [Concomitant]
     Active Substance: ESCITALOPRAM OXALATE
     Dosage: UNK, 1X/DAY

REACTIONS (4)
  - Device leakage [Unknown]
  - Needle issue [Unknown]
  - Device physical property issue [Unknown]
  - Drug dose omission by device [Unknown]
